FAERS Safety Report 9613378 (Version 2)
Quarter: 2013Q4

REPORT INFORMATION
  Report Type: Spontaneous
  Country: BR (occurrence: BR)
  Receive Date: 20131010
  Receipt Date: 20131010
  Transmission Date: 20140711
  Serious: Yes (Hospitalization, Other)
  Sender: FDA-Public Use
  Company Number: BR-PFIZER INC-2011240796

PATIENT
  Age: 50 Year
  Sex: Male
  Weight: 104 kg

DRUGS (2)
  1. CHAMPIX [Suspect]
     Indication: TOBACCO USER
     Dosage: UNK (TWO TIMES)
     Route: 048
     Dates: start: 201102
  2. CHAMPIX [Suspect]
     Indication: SMOKING CESSATION THERAPY
     Dosage: TWO
     Route: 048
     Dates: start: 20110906

REACTIONS (3)
  - Abdominal pain [Unknown]
  - Abasia [Unknown]
  - Drug ineffective [Unknown]
